FAERS Safety Report 17189625 (Version 3)
Quarter: 2022Q2

REPORT INFORMATION
  Report Type: Spontaneous
  Country: LB (occurrence: None)
  Receive Date: 20191223
  Receipt Date: 20220615
  Transmission Date: 20220721
  Serious: Yes (Other)
  Sender: FDA-Public Use
  Company Number: LB-ROCHE-2497607

PATIENT
  Age: 22 Year
  Sex: Female

DRUGS (16)
  1. MABTHERA [Suspect]
     Active Substance: RITUXIMAB
     Indication: Primary mediastinal large B-cell lymphoma
     Dosage: 4 CYCLES
     Route: 065
     Dates: start: 201801, end: 201804
  2. MABTHERA [Suspect]
     Active Substance: RITUXIMAB
     Dosage: 3 CYCLES
     Route: 065
     Dates: start: 201804, end: 201806
  3. MABTHERA [Suspect]
     Active Substance: RITUXIMAB
     Dosage: 2 CYCLES
     Route: 065
  4. CYCLOPHOSPHAMIDE [Suspect]
     Active Substance: CYCLOPHOSPHAMIDE
     Indication: Primary mediastinal large B-cell lymphoma
     Dosage: 4 CYCLES
     Route: 065
     Dates: start: 201801, end: 201804
  5. DOXORUBICIN [Suspect]
     Active Substance: DOXORUBICIN
     Indication: Primary mediastinal large B-cell lymphoma
     Dosage: 4 CYCLES
     Route: 065
     Dates: start: 201801, end: 201804
  6. ONCOVIN [Suspect]
     Active Substance: VINCRISTINE SULFATE
     Indication: Primary mediastinal large B-cell lymphoma
     Dosage: 4 CYCLES
     Route: 065
     Dates: start: 201801, end: 201804
  7. PREDNISONE [Suspect]
     Active Substance: PREDNISONE
     Indication: Primary mediastinal large B-cell lymphoma
     Dosage: 4 CYCLES
     Route: 065
     Dates: start: 201801, end: 201804
  8. IFOSFAMIDE [Suspect]
     Active Substance: IFOSFAMIDE
     Indication: Primary mediastinal large B-cell lymphoma
     Dosage: 3 CYCLES
     Route: 065
     Dates: start: 201804, end: 201806
  9. CARBOPLATIN [Suspect]
     Active Substance: CARBOPLATIN
     Indication: Primary mediastinal large B-cell lymphoma
     Dosage: 3 CYCLES
     Route: 065
     Dates: start: 201804, end: 201806
  10. ETOPOSIDE [Suspect]
     Active Substance: ETOPOSIDE
     Indication: Primary mediastinal large B-cell lymphoma
     Dosage: 3 CYCLES
     Route: 065
     Dates: start: 201804, end: 201806
  11. DEXAMETHASONE [Suspect]
     Active Substance: DEXAMETHASONE
     Indication: Primary mediastinal large B-cell lymphoma
     Dosage: 2 CYCLES
     Route: 065
  12. CYTARABINE [Suspect]
     Active Substance: CYTARABINE
     Indication: Primary mediastinal large B-cell lymphoma
     Dosage: 2 CYCLES
     Route: 065
  13. PLATINOL [Suspect]
     Active Substance: CISPLATIN
     Indication: Primary mediastinal large B-cell lymphoma
     Dosage: 2 CYCLES
     Route: 065
  14. NIVOLUMAB [Suspect]
     Active Substance: NIVOLUMAB
     Indication: Primary mediastinal large B-cell lymphoma
     Route: 065
     Dates: start: 201902
  15. POLATUZUMAB VEDOTIN [Suspect]
     Active Substance: POLATUZUMAB VEDOTIN
     Indication: Primary mediastinal large B-cell lymphoma
     Route: 065
     Dates: start: 20191227
  16. LENALIDOMIDE [Concomitant]
     Active Substance: LENALIDOMIDE
     Dates: start: 20191102

REACTIONS (10)
  - Lymphadenopathy mediastinal [Unknown]
  - Primary mediastinal large B-cell lymphoma recurrent [Unknown]
  - Lymphadenopathy [Unknown]
  - Atrial appendage closure [Unknown]
  - Investigation abnormal [Unknown]
  - Renal disorder [Unknown]
  - Renal neoplasm [Unknown]
  - B-cell lymphoma [Unknown]
  - Tumour thrombosis [Unknown]
  - Drug ineffective [Unknown]

NARRATIVE: CASE EVENT DATE: 20181023
